FAERS Safety Report 25959049 (Version 1)
Quarter: 2025Q4

REPORT INFORMATION
  Report Type: Report from Study
  Country: US (occurrence: US)
  Receive Date: 20251025
  Receipt Date: 20251025
  Transmission Date: 20260117
  Serious: Yes (Other)
  Sender: ALEXION PHARMACEUTICALS
  Company Number: US-AstraZeneca-CH-00976346A

PATIENT
  Age: 73 Year
  Sex: Female

DRUGS (1)
  1. CAPIVASERTIB [Suspect]
     Active Substance: CAPIVASERTIB
     Indication: Cervix carcinoma
     Dosage: 320 MILLIGRAM, BID
     Dates: start: 20250715, end: 20250930

REACTIONS (2)
  - Osteomyelitis [Unknown]
  - Brain fog [Unknown]
